FAERS Safety Report 17769239 (Version 2)
Quarter: 2020Q2

REPORT INFORMATION
  Report Type: Report from Study
  Country: None (occurrence: US)
  Receive Date: 20200512
  Receipt Date: 20200513
  Transmission Date: 20200714
  Serious: No
  Sender: FDA-Public Use
  Company Number: US-BIOVITRUM-2020US0667

PATIENT
  Sex: Male

DRUGS (1)
  1. KINERET [Suspect]
     Active Substance: ANAKINRA
     Indication: LANGERHANS^ CELL HISTIOCYTOSIS
     Route: 058
     Dates: start: 20190411

REACTIONS (7)
  - Ataxia [Unknown]
  - Balance disorder [Unknown]
  - Product dose omission [Unknown]
  - Gait disturbance [Unknown]
  - Pain in extremity [Unknown]
  - Contusion [Recovered/Resolved]
  - Off label use [Unknown]
